FAERS Safety Report 16301116 (Version 4)
Quarter: 2019Q3

REPORT INFORMATION
  Report Type: Spontaneous
  Country: PL (occurrence: PL)
  Receive Date: 20190510
  Receipt Date: 20190701
  Transmission Date: 20191004
  Serious: Yes (Death, Hospitalization)
  Sender: FDA-Public Use
  Company Number: PL-PFIZER INC-2019170503

PATIENT
  Age: 12 Year
  Sex: Male

DRUGS (1)
  1. BESPONSA [Suspect]
     Active Substance: INOTUZUMAB OZOGAMICIN
     Indication: MYELOID LEUKAEMIA
     Dosage: 0.57 MG/M2, CYCLIC
     Dates: start: 20190423

REACTIONS (5)
  - Mucosal disorder [Not Recovered/Not Resolved]
  - Off label use [Unknown]
  - Neoplasm progression [Fatal]
  - Thrombocytopenia [Not Recovered/Not Resolved]
  - Product use issue [Unknown]

NARRATIVE: CASE EVENT DATE: 20190423
